FAERS Safety Report 6393906-8 (Version None)
Quarter: 2009Q4

REPORT INFORMATION
  Report Type: 
  Country: None (occurrence: None)
  Receive Date: 20091008
  Receipt Date: 20091001
  Transmission Date: 20100525
  Serious: Yes (Hospitalization)
  Sender: FDA-Public Use
  Company Number: US-GENENTECH-291717

PATIENT
  Sex: Male

DRUGS (8)
  1. BEVACIZUMAB [Suspect]
     Indication: RECTAL CANCER
     Dosage: 5 MG/KG, UNK
     Route: 042
     Dates: start: 20090121
  2. RADIOTHERAPY [Suspect]
     Indication: RECTAL CANCER
     Dosage: UNK
     Dates: start: 20090121
  3. CAPECITABINE [Suspect]
     Indication: RECTAL CANCER
     Dosage: 825 MG/M2, UNK
     Route: 048
     Dates: start: 20090121
  4. OXALIPLATIN [Suspect]
     Indication: RECTAL CANCER
     Dosage: 50 MG/M2, UNK
     Route: 042
     Dates: start: 20090121
  5. OXALIPLATIN [Suspect]
     Dosage: 85 MG/M2, UNK
     Route: 042
  6. LEUCOVORIN CALCIUM [Suspect]
     Indication: RECTAL CANCER
     Dosage: 400 MG/M2, UNK
     Route: 042
  7. FLUOROURACIL [Suspect]
     Indication: RECTAL CANCER
     Dosage: 400 MG/M2, UNK
     Route: 042
  8. FLUOROURACIL [Suspect]
     Dosage: 2.4 G/M2, UNK
     Route: 042

REACTIONS (1)
  - RENAL FAILURE [None]
